FAERS Safety Report 7357612-5 (Version None)
Quarter: 2011Q1

REPORT INFORMATION
  Report Type: 
  Country: None (occurrence: None)
  Receive Date: 20110317
  Receipt Date: 20110314
  Transmission Date: 20110831
  Serious: Yes (Other)
  Sender: FDA-Public Use
  Company Number: DE-SANOFI-AVENTIS-2011SA000815

PATIENT
  Age: 35 Year
  Sex: Female
  Weight: 90 kg

DRUGS (7)
  1. IBUPROFEN [Suspect]
     Indication: RHEUMATOID ARTHRITIS
     Route: 048
     Dates: end: 20110103
  2. ORAL CONTRACEPTIVE NOS [Interacting]
     Indication: CONTRACEPTION
     Route: 048
  3. COLECALCIFEROL [Concomitant]
     Indication: RHEUMATOID ARTHRITIS
     Route: 048
     Dates: end: 20110103
  4. PANTOPRAZOLE [Suspect]
     Indication: RHEUMATOID ARTHRITIS
     Route: 048
     Dates: end: 20110103
  5. HUMIRA [Concomitant]
     Indication: RHEUMATOID ARTHRITIS
     Route: 058
     Dates: start: 20101004, end: 20110103
  6. ARAVA [Interacting]
     Indication: RHEUMATOID ARTHRITIS
     Route: 048
     Dates: start: 20100801, end: 20110103
  7. PREDNISONE [Concomitant]
     Indication: RHEUMATOID ARTHRITIS
     Route: 048
     Dates: end: 20110103

REACTIONS (4)
  - ABORTION MISSED [None]
  - DRUG INTERACTION [None]
  - PREGNANCY ON ORAL CONTRACEPTIVE [None]
  - DRUG EXPOSURE DURING PREGNANCY [None]
